FAERS Safety Report 7040244-6 (Version None)
Quarter: 2010Q4

REPORT INFORMATION
  Report Type: 
  Country: None (occurrence: None)
  Receive Date: 20101012
  Receipt Date: 20101007
  Transmission Date: 20110411
  Serious: Yes (Other)
  Sender: FDA-Public Use
  Company Number: FR-ROXANE LABORATORIES, INC.-2010-RO-01329RO

PATIENT
  Age: 29 Year

DRUGS (2)
  1. LIDOCAINE [Suspect]
     Indication: NERVE BLOCK
  2. ROPIVACAINE [Suspect]
     Indication: NERVE BLOCK

REACTIONS (1)
  - THERAPEUTIC RESPONSE PROLONGED [None]
